FAERS Safety Report 6095356-0 (Version None)
Quarter: 2009Q1

REPORT INFORMATION
  Report Type: 
  Country: None (occurrence: None)
  Receive Date: 20090227
  Receipt Date: 20080313
  Transmission Date: 20090719
  Serious: No
  Sender: FDA-Public Use
  Company Number: A0715242A

PATIENT

DRUGS (3)
  1. LAMICTAL [Suspect]
     Indication: DRUG USE FOR UNKNOWN INDICATION
     Route: 048
  2. FLUVOXAMINE [Concomitant]
  3. IODINE [Concomitant]
     Indication: SUPPLEMENTATION THERAPY

REACTIONS (1)
  - DYSGEUSIA [None]
